FAERS Safety Report 15329072 (Version 1)
Quarter: 2018Q3

REPORT INFORMATION
  Report Type: Report from Study
  Country: None (occurrence: US)
  Receive Date: 20180829
  Receipt Date: 20180829
  Transmission Date: 20181010
  Serious: Yes (Other)
  Sender: FDA-Public Use
  Company Number: US-BIOVITRUM-2018US1031

PATIENT
  Sex: Female

DRUGS (2)
  1. KINERET [Suspect]
     Active Substance: ANAKINRA
     Indication: PYREXIA
  2. KINERET [Suspect]
     Active Substance: ANAKINRA
     Indication: AMYLOIDOSIS
     Route: 058
     Dates: start: 20151015

REACTIONS (1)
  - Skin cancer [Unknown]
